FAERS Safety Report 9809252 (Version 1)
Quarter: 2014Q1

REPORT INFORMATION
  Report Type: Spontaneous
  Country: US (occurrence: US)
  Receive Date: 20140110
  Receipt Date: 20140110
  Transmission Date: 20141002
  Serious: Yes (Death)
  Sender: FDA-Public Use
  Company Number: US-PFIZER INC-2014005214

PATIENT
  Age: 53 Year
  Sex: Female

DRUGS (6)
  1. OXYCODONE HYDROCHLORIDE [Suspect]
     Dosage: UNK
     Route: 048
  2. ALPRAZOLAM [Suspect]
     Dosage: UNK
     Route: 048
  3. TEMAZEPAM [Suspect]
     Dosage: UNK
     Route: 048
  4. TRAZODONE [Suspect]
     Dosage: UNK
     Route: 048
  5. CARISOPRODOL [Suspect]
     Dosage: UNK
     Route: 048
  6. MEPROBAMATE [Suspect]
     Dosage: UNK
     Route: 048

REACTIONS (1)
  - Completed suicide [Fatal]
